FAERS Safety Report 6564607-8 (Version None)
Quarter: 2010Q1

REPORT INFORMATION
  Report Type: 
  Country: None (occurrence: None)
  Receive Date: 20100201
  Receipt Date: 20100119
  Transmission Date: 20100710
  Serious: Yes (Disabling)
  Sender: FDA-Public Use
  Company Number: PHHY2009IT57567

PATIENT
  Sex: Female

DRUGS (5)
  1. ZOMETA [Suspect]
     Indication: OSTEOPOROSIS
     Dosage: UNK
     Route: 042
     Dates: start: 20060601, end: 20060731
  2. CALCITRIOL [Concomitant]
     Dosage: UNK
  3. TICLID [Concomitant]
  4. LANSOX [Concomitant]
  5. ASPIRIN [Concomitant]

REACTIONS (2)
  - DEBRIDEMENT [None]
  - OSTEONECROSIS [None]
